FAERS Safety Report 7043822-3 (Version None)
Quarter: 2010Q4

REPORT INFORMATION
  Report Type: 
  Country: None (occurrence: None)
  Receive Date: 20101008
  Receipt Date: 20101008
  Transmission Date: 20110411
  Serious: Yes (Hospitalization)
  Sender: FDA-Public Use
  Company Number: None

PATIENT
  Age: 6 Year
  Sex: Female
  Weight: 26 kg

DRUGS (2)
  1. CEFTRIAXON [Suspect]
     Indication: SEPSIS
     Dosage: 1300 MG ONCE IV
     Route: 042
     Dates: start: 20100922
  2. STERILE WATER FOR RECONSTITUTION [Suspect]
     Indication: SEPSIS
     Dosage: STERILE WATER 32.5 ONCE IV
     Route: 042
     Dates: start: 20100922

REACTIONS (5)
  - CHILLS [None]
  - HYPOPHAGIA [None]
  - NAUSEA [None]
  - PYREXIA [None]
  - VOMITING [None]
